FAERS Safety Report 18431953 (Version 1)
Quarter: 2020Q4

REPORT INFORMATION
  Report Type: Spontaneous
  Country: US (occurrence: US)
  Receive Date: 20201027
  Receipt Date: 20201027
  Transmission Date: 20210114
  Serious: Yes (Death, Life-Threatening, Hospitalization)
  Sender: FDA-Public Use
  Company Number: US-JNJFOC-20201033028

PATIENT
  Age: 37 Year
  Sex: Female

DRUGS (1)
  1. PARACETAMOL [Suspect]
     Active Substance: ACETAMINOPHEN
     Indication: PRODUCT USED FOR UNKNOWN INDICATION
     Route: 048

REACTIONS (11)
  - Coma [Fatal]
  - Depressed level of consciousness [Fatal]
  - Hepatotoxicity [Fatal]
  - Acute lung injury [Fatal]
  - Tachycardia [Fatal]
  - Metabolic acidosis [Fatal]
  - Acute kidney injury [Fatal]
  - Hypothermia [Fatal]
  - Electrocardiogram QT prolonged [Fatal]
  - Toxicity to various agents [Fatal]
  - Hypotension [Fatal]
